FAERS Safety Report 11029668 (Version 1)
Quarter: 2015Q2

REPORT INFORMATION
  Report Type: Spontaneous
  Country: US (occurrence: None)
  Receive Date: 20150414
  Receipt Date: 20150414
  Transmission Date: 20150821
  Serious: Yes (Death)
  Sender: FDA-Public Use
  Company Number: None

PATIENT
  Age: 58 Year
  Sex: Female

DRUGS (1)
  1. HARVONI [Suspect]
     Active Substance: LEDIPASVIR\SOFOSBUVIR
     Indication: HEPATITIS C
     Dosage: HARVONI, ONCE DAILY, BY MOUTH
     Route: 048
     Dates: start: 20150205, end: 20150409

REACTIONS (1)
  - Death [None]

NARRATIVE: CASE EVENT DATE: 20150410
